FAERS Safety Report 19104964 (Version 2)
Quarter: 2021Q3

REPORT INFORMATION
  Report Type: Spontaneous
  Country: HK (occurrence: HK)
  Receive Date: 20210407
  Receipt Date: 20210713
  Transmission Date: 20211014
  Serious: Yes (Other)
  Sender: FDA-Public Use
  Company Number: HK-BAYER-2021-114356

PATIENT
  Age: 34 Year
  Sex: Female

DRUGS (1)
  1. YAZ [Suspect]
     Active Substance: DROSPIRENONE\ETHINYL ESTRADIOL
     Dosage: UNK
     Route: 048
     Dates: start: 201910

REACTIONS (3)
  - Intermenstrual bleeding [Recovered/Resolved]
  - Abnormal withdrawal bleeding [Not Recovered/Not Resolved]
  - Oral bacterial infection [None]

NARRATIVE: CASE EVENT DATE: 202105
